FAERS Safety Report 7617408-3 (Version None)
Quarter: 2011Q3

REPORT INFORMATION
  Report Type: 
  Country: None (occurrence: None)
  Receive Date: 20110718
  Receipt Date: 20110712
  Transmission Date: 20111222
  Serious: No
  Sender: FDA-Public Use
  Company Number: US-PFIZER INC-2011158307

PATIENT
  Sex: Female

DRUGS (6)
  1. TIKOSYN [Suspect]
     Dosage: 125 MG, TWO CAPSULES DAILY
  2. ACIPHEX [Concomitant]
     Dosage: UNK
  3. DIGOXIN [Concomitant]
     Dosage: UNK
  4. PROGRAF [Concomitant]
     Dosage: UNK
  5. PREDNISONE [Concomitant]
     Dosage: UNK
  6. PLAQUENIL [Concomitant]
     Dosage: UNK

REACTIONS (1)
  - PAIN [None]
